FAERS Safety Report 13047298 (Version 2)
Quarter: 2017Q1

REPORT INFORMATION
  Report Type: Spontaneous
  Country: FR (occurrence: FR)
  Receive Date: 20161220
  Receipt Date: 20170201
  Transmission Date: 20170428
  Serious: Yes (Hospitalization)
  Sender: FDA-Public Use
  Company Number: PHHY2016FR170593

PATIENT
  Age: 29 Year
  Weight: 55 kg

DRUGS (5)
  1. COSENTYX [Suspect]
     Active Substance: SECUKINUMAB
     Dosage: 150 MG, QW (1 DF WEEKLY)
     Route: 058
     Dates: start: 20161125
  2. CORTISONE [Concomitant]
     Active Substance: CORTISONE\HYDROCORTISONE
     Indication: RHEUMATOID ARTHRITIS
     Dosage: PRN (FROM TIME TO TIME)
     Route: 065
  3. COSENTYX [Suspect]
     Active Substance: SECUKINUMAB
     Dosage: 150 MG, QW (1 DF WEEKLY)
     Route: 058
     Dates: start: 20161202
  4. COSENTYX [Suspect]
     Active Substance: SECUKINUMAB
     Indication: RHEUMATOID ARTHRITIS
     Dosage: 150 MG, QW (1 DF WEEKLY)
     Route: 058
     Dates: start: 20161114
  5. OPTILOVA [Concomitant]
     Active Substance: ETHINYL ESTRADIOL\LEVONORGESTREL
     Indication: CONTRACEPTION
     Dosage: UNK
     Route: 048

REACTIONS (16)
  - Mucosal inflammation [Recovered/Resolved]
  - Nausea [Not Recovered/Not Resolved]
  - Papule [Recovered/Resolved]
  - Skin exfoliation [Recovered/Resolved]
  - Acne [Recovering/Resolving]
  - Lip dry [Recovered/Resolved]
  - Decreased appetite [Not Recovered/Not Resolved]
  - Erythema [Recovered/Resolved]
  - Product use issue [Unknown]
  - Skin discolouration [Recovered/Resolved]
  - Scarlet fever [Recovered/Resolved]
  - Burning sensation [Recovered/Resolved]
  - Pruritus [Recovered/Resolved]
  - Rash [Unknown]
  - Metrorrhagia [Not Recovered/Not Resolved]
  - Pyrexia [Recovered/Resolved]

NARRATIVE: CASE EVENT DATE: 201611
